FAERS Safety Report 11758826 (Version 2)
Quarter: 2015Q4

REPORT INFORMATION
  Report Type: Spontaneous
  Country: HR (occurrence: HR)
  Receive Date: 20151120
  Receipt Date: 20151201
  Transmission Date: 20160304
  Serious: Yes (Life-Threatening, Hospitalization, Other)
  Sender: FDA-Public Use
  Company Number: HR-PFIZER INC-2015383194

PATIENT
  Age: 75 Year
  Sex: Male
  Weight: 73 kg

DRUGS (4)
  1. SUTENT [Suspect]
     Active Substance: SUNITINIB MALATE
     Indication: RENAL CANCER
     Dosage: 50 MG, 1X/DAY
     Route: 048
     Dates: start: 20150819, end: 20150915
  2. RANTIN [Concomitant]
     Dosage: 150 MG, 1X/DAY
     Route: 048
  3. TYREZ [Concomitant]
     Dosage: 5 MG, 1X/DAY
     Route: 048
  4. FURSEMID [Concomitant]
     Active Substance: FUROSEMIDE
     Dosage: 40 MG, 1X/DAY
     Route: 048

REACTIONS (12)
  - Febrile neutropenia [Recovered/Resolved]
  - Inflammation [Unknown]
  - Leukopenia [Unknown]
  - Thrombocytopenia [Unknown]
  - Hyperkalaemia [Unknown]
  - Hyponatraemia [Unknown]
  - Metabolic acidosis [Unknown]
  - Blood creatinine increased [Unknown]
  - Anaemia [Unknown]
  - Blood urea increased [Unknown]
  - Hypercalcaemia [Unknown]
  - Urine output decreased [Unknown]

NARRATIVE: CASE EVENT DATE: 2015
